FAERS Safety Report 4321054-7 (Version None)
Quarter: 2004Q1

REPORT INFORMATION
  Report Type: 
  Country: None (occurrence: None)
  Receive Date: 20040318
  Receipt Date: 20040303
  Transmission Date: 20041129
  Serious: Yes (Hospitalization)
  Sender: FDA-Public Use
  Company Number: UK059705

PATIENT
  Age: 15 Year
  Sex: Female

DRUGS (4)
  1. NEUPOGEN [Suspect]
     Indication: CHEMOTHERAPY
     Dosage: 300 MCG, PER CHEMO REGIMEN, SC
     Route: 058
     Dates: start: 20030731
  2. IRINOTECAN [Suspect]
     Dosage: 26 MG, IV
     Route: 042
     Dates: start: 20030701
  3. TROPISETRON [Concomitant]
  4. OMEPRAZOLE [Concomitant]

REACTIONS (7)
  - ABDOMINAL PAIN [None]
  - ANAEMIA [None]
  - ANOREXIA [None]
  - ESCHERICHIA INFECTION [None]
  - FEBRILE NEUTROPENIA [None]
  - FUNGAL INFECTION [None]
  - VOMITING [None]
